FAERS Safety Report 19242001 (Version 1)
Quarter: 2021Q2

REPORT INFORMATION
  Report Type: Spontaneous
  Country: AR (occurrence: AR)
  Receive Date: 20210511
  Receipt Date: 20210511
  Transmission Date: 20210717
  Serious: Yes (Other)
  Sender: FDA-Public Use
  Company Number: AR-AMGEN-ARGSP2021071060

PATIENT
  Age: 68 Year
  Sex: Female

DRUGS (1)
  1. ENBREL [Suspect]
     Active Substance: ETANERCEPT
     Indication: RHEUMATOID ARTHRITIS
     Dosage: 50 MG, EVERY 2 WEEKS
     Route: 065
     Dates: start: 20080818

REACTIONS (5)
  - Herpes zoster [Unknown]
  - Decreased immune responsiveness [Unknown]
  - Pain [Unknown]
  - Off label use [Unknown]
  - Fracture [Unknown]

NARRATIVE: CASE EVENT DATE: 20080818
